FAERS Safety Report 5449919-3 (Version None)
Quarter: 2007Q3

REPORT INFORMATION
  Report Type: 
  Country: None (occurrence: None)
  Receive Date: 20070912
  Receipt Date: 20070718
  Transmission Date: 20080115
  Serious: Yes (Hospitalization)
  Sender: FDA-Public Use
  Company Number: JP-NOVOPROD-265842

PATIENT
  Age: 30 Year
  Sex: Female

DRUGS (1)
  1. NOVORAPID CHU [Suspect]
     Indication: TYPE 1 DIABETES MELLITUS
     Route: 058

REACTIONS (3)
  - ALBUMINURIA [None]
  - HYPERTENSION [None]
  - OEDEMA [None]
